FAERS Safety Report 4969426-1 (Version None)
Quarter: 2006Q2

REPORT INFORMATION
  Report Type: 
  Country: None (occurrence: None)
  Receive Date: 20060406
  Receipt Date: 20060329
  Transmission Date: 20061013
  Serious: Yes (Other)
  Sender: FDA-Public Use
  Company Number: 200611302BWH

PATIENT
  Age: 26 Year
  Sex: Female

DRUGS (7)
  1. AVELOX [Suspect]
     Indication: SINUSITIS
     Dosage: ONCE, ORAL
     Route: 048
  2. ESTROSTEP [Concomitant]
  3. FLOVENT [Concomitant]
  4. VALTREX [Concomitant]
  5. PROVENTIL [Concomitant]
  6. SINGULAIR [Concomitant]
  7. ADVAIR DISKUS 100/50 [Concomitant]

REACTIONS (4)
  - FEELING ABNORMAL [None]
  - MUSCLE TWITCHING [None]
  - SPEECH DISORDER [None]
  - UNEVALUABLE EVENT [None]
